FAERS Safety Report 15251663 (Version 1)
Quarter: 2018Q3

REPORT INFORMATION
  Report Type: Spontaneous
  Country: US (occurrence: US)
  Receive Date: 20180717
  Receipt Date: 20180717
  Transmission Date: 20181010
  Serious: Yes (Hospitalization)
  Sender: FDA-Public Use
  Company Number: None

PATIENT
  Age: 48 Year
  Sex: Male

DRUGS (1)
  1. LETAIRIS [Suspect]
     Active Substance: AMBRISENTAN
     Indication: COR PULMONALE
     Route: 048
     Dates: start: 20171128

REACTIONS (5)
  - Chest pain [None]
  - Cough [None]
  - Respiratory failure [None]
  - Pneumonia [None]
  - Back pain [None]

NARRATIVE: CASE EVENT DATE: 20180618
